FAERS Safety Report 8449038-8 (Version None)
Quarter: 2012Q2

REPORT INFORMATION
  Report Type: 
  Country: None (occurrence: None)
  Receive Date: 20120619
  Receipt Date: 20120608
  Transmission Date: 20120825
  Serious: Yes (Other)
  Sender: FDA-Public Use
  Company Number: US-JNJFOC-20120605532

PATIENT
  Sex: Female
  Weight: 73.48 kg

DRUGS (8)
  1. ACETAMINOPHEN [Suspect]
     Indication: PAIN
     Route: 065
  2. DIAZEPAM [Concomitant]
     Indication: PAIN
     Dosage: TAKEN AS NEEDED EITHER ONCE OR TWICE PER DAY
  3. ACETAMINOPHEN [Suspect]
     Route: 065
  4. PERCOCET [Suspect]
     Indication: PAIN
     Dosage: WOULD SPLIT THE TABLET AND TAKE A QUARTER OF IT.
     Route: 065
  5. IBUPROFEN (ADVIL) [Suspect]
     Indication: PAIN
     Route: 065
  6. PERCOCET [Suspect]
     Dosage: WOULD SPLIT THE TABLET AND TAKE A QUARTER OF IT.
     Route: 065
  7. NAPROXEN (ALEVE) [Suspect]
     Indication: PAIN
     Route: 065
  8. CHANTIX [Suspect]
     Indication: SMOKING CESSATION THERAPY
     Dosage: STARTED 4 YEARS AGO
     Route: 048

REACTIONS (8)
  - LIVER INJURY [None]
  - SYSTEMIC LUPUS ERYTHEMATOSUS [None]
  - VITAMIN D DEFICIENCY [None]
  - HEPATIC PAIN [None]
  - WEIGHT INCREASED [None]
  - HYPERTENSION [None]
  - ANXIETY [None]
  - BLOOD CHOLESTEROL INCREASED [None]
